FAERS Safety Report 7400271-3 (Version None)
Quarter: 2011Q2

REPORT INFORMATION
  Report Type: 
  Country: None (occurrence: None)
  Receive Date: 20110407
  Receipt Date: 20110330
  Transmission Date: 20111010
  Serious: Yes (Other)
  Sender: FDA-Public Use
  Company Number: DK-ELI_LILLY_AND_COMPANY-DK201104000639

PATIENT
  Sex: Male

DRUGS (1)
  1. STRATTERA [Suspect]
     Indication: ATTENTION DEFICIT/HYPERACTIVITY DISORDER
     Dosage: 18 MG, UNK
     Dates: start: 20110311

REACTIONS (10)
  - CHEST DISCOMFORT [None]
  - DYSGEUSIA [None]
  - ERYTHEMA [None]
  - DEPRESSION [None]
  - MALE ORGASMIC DISORDER [None]
  - THROAT TIGHTNESS [None]
  - THROAT IRRITATION [None]
  - DYSPNOEA [None]
  - HYPOAESTHESIA [None]
  - THIRST [None]
